FAERS Safety Report 12832464 (Version 1)
Quarter: 2016Q4

REPORT INFORMATION
  Report Type: Spontaneous
  Country: US (occurrence: US)
  Receive Date: 20161010
  Receipt Date: 20161010
  Transmission Date: 20170207
  Serious: No
  Sender: FDA-Public Use
  Company Number: US-JAZZ-2016-US-013460

PATIENT
  Sex: Female

DRUGS (30)
  1. XYREM [Suspect]
     Active Substance: SODIUM OXYBATE
     Dosage: DOSE ADJUSTMENTS
     Route: 048
     Dates: start: 200404, end: 200507
  2. ZADITOR [Concomitant]
     Active Substance: KETOTIFEN FUMARATE
  3. NORTRIPTYLINE HCL [Concomitant]
     Active Substance: NORTRIPTYLINE HYDROCHLORIDE
  4. ZITHROMAX [Concomitant]
     Active Substance: AZITHROMYCIN DIHYDRATE
  5. XYREM [Suspect]
     Active Substance: SODIUM OXYBATE
     Indication: INSOMNIA
     Dosage: 3 G, BID
     Route: 048
     Dates: start: 200403, end: 200404
  6. CALCIUM +D [Concomitant]
     Active Substance: CALCIUM\VITAMIN D
  7. LIPITOR [Concomitant]
     Active Substance: ATORVASTATIN CALCIUM
  8. PERCOCET [Concomitant]
     Active Substance: ACETAMINOPHEN\OXYCODONE HYDROCHLORIDE
  9. OXYCODONE AND ACETAMINOPHEN [Concomitant]
     Active Substance: ACETAMINOPHEN\OXYCODONE HYDROCHLORIDE
  10. LORATADINE. [Concomitant]
     Active Substance: LORATADINE
  11. ANECREAM 5 [Concomitant]
     Active Substance: LIDOCAINE
  12. GABAPENTIN. [Concomitant]
     Active Substance: GABAPENTIN
  13. METFORMIN HCL [Concomitant]
     Active Substance: METFORMIN HYDROCHLORIDE
  14. MULTIVITAMINS [Concomitant]
     Active Substance: VITAMINS
  15. NABUMETONE. [Concomitant]
     Active Substance: NABUMETONE
  16. PATANOL [Concomitant]
     Active Substance: OLOPATADINE HYDROCHLORIDE
  17. XYREM [Suspect]
     Active Substance: SODIUM OXYBATE
     Dosage: 6 G, BID
     Route: 048
     Dates: start: 200507
  18. ASPIRIN. [Concomitant]
     Active Substance: ASPIRIN
  19. MELATONIN [Concomitant]
     Active Substance: MELATONIN
  20. METOPROLOL TARTRATE. [Concomitant]
     Active Substance: METOPROLOL TARTRATE
  21. SEROQUEL [Concomitant]
     Active Substance: QUETIAPINE FUMARATE
  22. FLONASE [Concomitant]
     Active Substance: FLUTICASONE PROPIONATE
  23. CLEOCIN [Concomitant]
     Active Substance: CLINDAMYCIN PHOSPHATE
  24. OMEPRAZOLE. [Concomitant]
     Active Substance: OMEPRAZOLE
  25. PAXIL [Concomitant]
     Active Substance: PAROXETINE HYDROCHLORIDE
  26. PRAMIPEXOLE. [Concomitant]
     Active Substance: PRAMIPEXOLE
  27. ALOCRIL [Concomitant]
     Active Substance: NEDOCROMIL SODIUM
  28. GUAIFENESIN. [Concomitant]
     Active Substance: GUAIFENESIN
  29. NORCO [Concomitant]
     Active Substance: ACETAMINOPHEN\HYDROCODONE BITARTRATE
  30. TOPAMAX [Concomitant]
     Active Substance: TOPIRAMATE

REACTIONS (1)
  - Drug diversion [Unknown]
